FAERS Safety Report 21092643 (Version 1)
Quarter: 2022Q3

REPORT INFORMATION
  Report Type: Report from Study
  Country: US (occurrence: US)
  Receive Date: 20220718
  Receipt Date: 20220718
  Transmission Date: 20221026
  Serious: Yes (Other)
  Sender: FDA-Public Use
  Company Number: US-TAKEDA-2022TUS033380

PATIENT
  Sex: Male

DRUGS (16)
  1. TEDUGLUTIDE [Suspect]
     Active Substance: TEDUGLUTIDE
     Indication: Short-bowel syndrome
     Dosage: 2.88 MILLIGRAM, QD
     Route: 058
     Dates: start: 20220420
  2. TEDUGLUTIDE [Suspect]
     Active Substance: TEDUGLUTIDE
     Indication: Short-bowel syndrome
     Dosage: 2.88 MILLIGRAM, QD
     Route: 058
     Dates: start: 20220420
  3. TEDUGLUTIDE [Suspect]
     Active Substance: TEDUGLUTIDE
     Indication: Short-bowel syndrome
     Dosage: 2.88 MILLIGRAM, QD
     Route: 058
     Dates: start: 20220420
  4. TEDUGLUTIDE [Suspect]
     Active Substance: TEDUGLUTIDE
     Indication: Short-bowel syndrome
     Dosage: 2.88 MILLIGRAM, QD
     Route: 058
     Dates: start: 20220420
  5. TEDUGLUTIDE [Suspect]
     Active Substance: TEDUGLUTIDE
     Indication: Malabsorption
     Dosage: 2.88 MILLIGRAM, 4/WEEK
     Route: 030
     Dates: start: 20220420
  6. TEDUGLUTIDE [Suspect]
     Active Substance: TEDUGLUTIDE
     Indication: Malabsorption
     Dosage: 2.88 MILLIGRAM, 4/WEEK
     Route: 030
     Dates: start: 20220420
  7. TEDUGLUTIDE [Suspect]
     Active Substance: TEDUGLUTIDE
     Indication: Malabsorption
     Dosage: 2.88 MILLIGRAM, 4/WEEK
     Route: 030
     Dates: start: 20220420
  8. TEDUGLUTIDE [Suspect]
     Active Substance: TEDUGLUTIDE
     Indication: Malabsorption
     Dosage: 2.88 MILLIGRAM, 4/WEEK
     Route: 030
     Dates: start: 20220420
  9. TEDUGLUTIDE [Suspect]
     Active Substance: TEDUGLUTIDE
     Dosage: 2.88 MILLIGRAM, 5/WEEK
     Route: 030
     Dates: start: 20220420
  10. TEDUGLUTIDE [Suspect]
     Active Substance: TEDUGLUTIDE
     Dosage: 2.88 MILLIGRAM, 5/WEEK
     Route: 030
     Dates: start: 20220420
  11. TEDUGLUTIDE [Suspect]
     Active Substance: TEDUGLUTIDE
     Dosage: 2.88 MILLIGRAM, 5/WEEK
     Route: 030
     Dates: start: 20220420
  12. TEDUGLUTIDE [Suspect]
     Active Substance: TEDUGLUTIDE
     Dosage: 2.88 MILLIGRAM, 5/WEEK
     Route: 030
     Dates: start: 20220420
  13. TEDUGLUTIDE [Suspect]
     Active Substance: TEDUGLUTIDE
     Dosage: 2.88 MILLIGRAM, QD
     Route: 058
     Dates: start: 20211201
  14. TEDUGLUTIDE [Suspect]
     Active Substance: TEDUGLUTIDE
     Dosage: 2.88 MILLIGRAM, QD
     Route: 058
     Dates: start: 20211201
  15. TEDUGLUTIDE [Suspect]
     Active Substance: TEDUGLUTIDE
     Dosage: 2.88 MILLIGRAM, QD
     Route: 058
     Dates: start: 20211201
  16. TEDUGLUTIDE [Suspect]
     Active Substance: TEDUGLUTIDE
     Dosage: 2.88 MILLIGRAM, QD
     Route: 058
     Dates: start: 20211201

REACTIONS (6)
  - Sepsis [Unknown]
  - Stoma site pain [Not Recovered/Not Resolved]
  - Abdominal distension [Unknown]
  - Abdominal pain upper [Unknown]
  - Product use issue [Unknown]
  - Intentional product use issue [Unknown]
